FAERS Safety Report 4744631-8 (Version None)
Quarter: 2005Q3

REPORT INFORMATION
  Report Type: 
  Country: None (occurrence: None)
  Receive Date: 20050815
  Receipt Date: 20050523
  Transmission Date: 20060218
  Serious: Yes (Disabling)
  Sender: FDA-Public Use
  Company Number: GB-RB-1697-2005

PATIENT
  Age: 62 Year
  Sex: Male
  Weight: 65 kg

DRUGS (2)
  1. BUPRENORPHINE HCL [Suspect]
     Indication: PAIN
     Dosage: AS REQUIRED UP TO 1200 MGM DAILY
     Route: 048
     Dates: start: 19920101
  2. ALFUZOSIN HYDROCHLORIDE [Concomitant]
     Indication: PROSTATISM
     Route: 048
     Dates: start: 20020219

REACTIONS (2)
  - BREAST PAIN [None]
  - GYNAECOMASTIA [None]
